FAERS Safety Report 26057509 (Version 1)
Quarter: 2025Q4

REPORT INFORMATION
  Report Type: Spontaneous
  Country: EU (occurrence: EU)
  Receive Date: 20251118
  Receipt Date: 20251118
  Transmission Date: 20260118
  Serious: Yes (Other)
  Sender: ACCORD
  Company Number: None

PATIENT
  Age: 70 Year
  Sex: Female

DRUGS (3)
  1. DAPTOMYCIN [Interacting]
     Active Substance: DAPTOMYCIN
     Indication: Endocarditis
     Dates: start: 20250602, end: 20250613
  2. TEDIZOLID [Interacting]
     Active Substance: TEDIZOLID
     Indication: Endocarditis
     Dosage: STRENGTH: 200 MG
     Dates: start: 20250613, end: 20250718
  3. CEFTAROLINE [Interacting]
     Active Substance: CEFTAROLINE
     Indication: Endocarditis
     Dates: start: 20250602, end: 20250613

REACTIONS (1)
  - Dental caries [Recovered/Resolved with Sequelae]

NARRATIVE: CASE EVENT DATE: 20250710
